FAERS Safety Report 22238949 (Version 1)
Quarter: 2023Q2

REPORT INFORMATION
  Report Type: Spontaneous
  Country: US (occurrence: US)
  Receive Date: 20230421
  Receipt Date: 20230421
  Transmission Date: 20230721
  Serious: No
  Sender: FDA-Public Use
  Company Number: USA--2022-US-000516

PATIENT
  Age: 52 Year
  Sex: Female

DRUGS (6)
  1. CYANOCOBALAMIN [Suspect]
     Active Substance: CYANOCOBALAMIN
     Dosage: 1 ML PER WEEK
     Dates: start: 20220305
  2. LEVEMIR [Concomitant]
     Active Substance: INSULIN DETEMIR
     Route: 065
  3. LEVOTHYROXINE [Concomitant]
     Active Substance: LEVOTHYROXINE
     Route: 048
  4. HUMALOG [Concomitant]
     Active Substance: INSULIN LISPRO
  5. OMEGA 3 [Concomitant]
     Active Substance: CAPSAICIN
  6. VITAMIN D [Concomitant]
     Active Substance: VITAMIN D NOS
     Route: 048

REACTIONS (2)
  - Depression [Recovered/Resolved]
  - Anger [Recovered/Resolved]

NARRATIVE: CASE EVENT DATE: 20220305
